FAERS Safety Report 25166625 (Version 1)
Quarter: 2025Q2

REPORT INFORMATION
  Report Type: Spontaneous
  Country: US (occurrence: US)
  Receive Date: 20250407
  Receipt Date: 20250407
  Transmission Date: 20250716
  Serious: No
  Sender: TEVA
  Company Number: US-TEVA-VS-3313897

PATIENT
  Age: 54 Year
  Sex: Male

DRUGS (2)
  1. AUSTEDO [Suspect]
     Active Substance: DEUTETRABENAZINE
     Indication: Dyskinesia
     Route: 065
     Dates: start: 20231219
  2. AUSTEDO [Suspect]
     Active Substance: DEUTETRABENAZINE
     Indication: Dyskinesia
     Dosage: AUSTEDO 24 MG IN THE MORNING + AUSTEDO 18 MG IN THE EVENING FOR A TOTAL OF 42 MG PER DAY.
     Route: 065

REACTIONS (4)
  - Fatigue [Unknown]
  - Wrong technique in product usage process [Unknown]
  - Dysarthria [Unknown]
  - Product use issue [Unknown]
